FAERS Safety Report 13551802 (Version 1)
Quarter: 2017Q2

REPORT INFORMATION
  Report Type: Report from Study
  Country: US (occurrence: US)
  Receive Date: 20170516
  Receipt Date: 20170516
  Transmission Date: 20170830
  Serious: Yes (Death, Hospitalization)
  Sender: FDA-Public Use
  Company Number: US-BAYER-2016-112660

PATIENT
  Sex: Male
  Weight: 92.06 kg

DRUGS (14)
  1. RADIUM-223 DICHLORIDE [Suspect]
     Active Substance: RADIUM RA-223 DICHLORIDE
     Indication: PROSTATE CANCER STAGE IV
     Dosage: 155.5 ?CI, ONCE
     Route: 042
     Dates: start: 20160506, end: 20160506
  2. AMBIEN [Concomitant]
     Active Substance: ZOLPIDEM TARTRATE
     Dosage: 1 MG, PRN
     Dates: start: 20110105
  3. PERCOCET [Concomitant]
     Active Substance: ACETAMINOPHEN\OXYCODONE HYDROCHLORIDE
     Dosage: 10/325 MG PRN, UP TO 6X/QD
     Dates: start: 20110105
  4. NEXIUM [Concomitant]
     Active Substance: ESOMEPRAZOLE MAGNESIUM
     Dosage: 40 MG, QD
     Dates: start: 20110105
  5. RADIUM-223 DICHLORIDE [Suspect]
     Active Substance: RADIUM RA-223 DICHLORIDE
     Indication: METASTASES TO BONE
     Dosage: 151.74 ?CI, ONCE
     Route: 042
     Dates: start: 20160610, end: 20160610
  6. FLEXERIL [Concomitant]
     Active Substance: CYCLOBENZAPRINE HYDROCHLORIDE
     Dosage: 10 MG, BID
     Dates: start: 20140108
  7. PREDNISONE. [Concomitant]
     Active Substance: PREDNISONE
     Dosage: UNK
     Dates: start: 20110501
  8. RADIUM-223 DICHLORIDE [Suspect]
     Active Substance: RADIUM RA-223 DICHLORIDE
     Indication: PROSTATE CANCER STAGE IV
     Dosage: 137.87 ?CI, ONCE
     Dates: start: 20160815, end: 20160815
  9. FENTANYL. [Concomitant]
     Active Substance: FENTANYL
     Dosage: 50 MG, Q72HR
     Dates: start: 20160507
  10. ZOMETA [Concomitant]
     Active Substance: ZOLEDRONIC ACID
     Dosage: UNK UNK, Q1MON
     Dates: start: 20160607, end: 20160607
  11. NEURONTIN [Concomitant]
     Active Substance: GABAPENTIN
     Dosage: 800 MG, TID
     Dates: start: 20110105
  12. RADIUM-223 DICHLORIDE [Suspect]
     Active Substance: RADIUM RA-223 DICHLORIDE
     Indication: PROSTATE CANCER STAGE IV
     Dosage: 135.99 ?CI, ONCE
     Dates: start: 20160718, end: 20160718
  13. MORPHINE [Concomitant]
     Active Substance: MORPHINE
     Dosage: 100 MG, TID
     Dates: start: 20110105
  14. XANAX [Concomitant]
     Active Substance: ALPRAZOLAM
     Dosage: 1 MG, TID
     Dates: start: 20110105

REACTIONS (2)
  - Anaemia [Recovered/Resolved]
  - Lung neoplasm malignant [Fatal]

NARRATIVE: CASE EVENT DATE: 20160602
